FAERS Safety Report 15262851 (Version 1)
Quarter: 2018Q3

REPORT INFORMATION
  Report Type: Spontaneous
  Country: HK (occurrence: HK)
  Receive Date: 20180810
  Receipt Date: 20180810
  Transmission Date: 20181010
  Serious: Yes (Other)
  Sender: FDA-Public Use
  Company Number: HK-SUN PHARMACEUTICAL INDUSTRIES LTD-2018RR-181012

PATIENT
  Age: 31 Year
  Sex: Male

DRUGS (10)
  1. VALPROATE [Suspect]
     Active Substance: VALPROIC ACID
     Indication: GENERALISED TONIC-CLONIC SEIZURE
     Dosage: 1200 MG, DAILY
     Route: 042
  2. PHENOBARBITONE [Suspect]
     Active Substance: PHENOBARBITAL
     Indication: GENERALISED TONIC-CLONIC SEIZURE
     Dosage: 300 MG, DAILY
     Route: 042
  3. LACOSAMIDE. [Suspect]
     Active Substance: LACOSAMIDE
     Indication: GENERALISED TONIC-CLONIC SEIZURE
     Dosage: UNK
     Route: 065
  4. OXCARBAZEPINE. [Suspect]
     Active Substance: OXCARBAZEPINE
     Indication: GENERALISED TONIC-CLONIC SEIZURE
     Dosage: UNK
     Route: 065
  5. PHENYTOIN. [Suspect]
     Active Substance: PHENYTOIN
     Indication: GENERALISED TONIC-CLONIC SEIZURE
     Dosage: 300 MG, DAILY
     Route: 042
  6. KETAMINE [Concomitant]
     Active Substance: KETAMINE
     Indication: GENERALISED TONIC-CLONIC SEIZURE
     Dosage: 220 MG, Q1H
     Route: 065
  7. PROPOFOL. [Suspect]
     Active Substance: PROPOFOL
     Indication: GENERALISED TONIC-CLONIC SEIZURE
     Dosage: UP TO 110 MG/H
     Route: 042
  8. THIOPENTONE [Suspect]
     Active Substance: THIOPENTAL SODIUM
     Indication: GENERALISED TONIC-CLONIC SEIZURE
     Dosage: 300 MG, Q1H
     Route: 065
  9. LEVETIRACETAM. [Suspect]
     Active Substance: LEVETIRACETAM
     Indication: GENERALISED TONIC-CLONIC SEIZURE
     Dosage: 3000 MG, DAILY
     Route: 042
  10. MIDAZOLAM [Suspect]
     Active Substance: MIDAZOLAM HYDROCHLORIDE
     Indication: GENERALISED TONIC-CLONIC SEIZURE
     Dosage: APPROXIMATELY 60 MG/H
     Route: 042

REACTIONS (6)
  - Drug resistance [Unknown]
  - Drug effect incomplete [Unknown]
  - Hyperammonaemia [Unknown]
  - Drug ineffective [Unknown]
  - Sepsis [Unknown]
  - Hepatotoxicity [Unknown]
